FAERS Safety Report 6334273-5 (Version None)
Quarter: 2009Q3

REPORT INFORMATION
  Report Type: 
  Country: None (occurrence: None)
  Receive Date: 20090829
  Receipt Date: 20090814
  Transmission Date: 20100115
  Serious: No
  Sender: FDA-Public Use
  Company Number: US-ABBOTT-09P-163-0592207-00

PATIENT
  Sex: Male
  Weight: 107.6 kg

DRUGS (11)
  1. SIMCOR [Suspect]
     Indication: HIGH DENSITY LIPOPROTEIN INCREASED
     Dosage: 500/20MG TWICE DAILY
     Route: 048
     Dates: start: 20090714, end: 20090719
  2. SIMCOR [Suspect]
     Indication: LOW DENSITY LIPOPROTEIN DECREASED
     Dosage: 500/20MG TWICE DAILY
     Route: 048
     Dates: start: 20090701, end: 20090811
  3. IBUPROFEN [Concomitant]
     Indication: ARTHRALGIA
  4. RANITIDINE [Concomitant]
     Indication: HYPERCHLORHYDRIA
  5. DARVOCET [Concomitant]
     Indication: ARTHRALGIA
  6. XANAX [Concomitant]
     Indication: DRUG USE FOR UNKNOWN INDICATION
     Dosage: AS REQUIRED
  7. LISINOPRIL [Concomitant]
     Indication: HYPERTENSION
  8. HYDROCHLOROTHIAZIDE [Concomitant]
     Indication: HYPERTENSION
  9. GLUCOPHAGE [Concomitant]
     Indication: DIABETES MELLITUS
  10. INSULIN [Concomitant]
     Indication: DIABETES MELLITUS
  11. SIMILAN [Concomitant]
     Indication: DIABETES MELLITUS
     Route: 050

REACTIONS (3)
  - FLUSHING [None]
  - INAPPROPRIATE SCHEDULE OF DRUG ADMINISTRATION [None]
  - PARAESTHESIA [None]
